FAERS Safety Report 15900011 (Version 1)
Quarter: 2019Q1

REPORT INFORMATION
  Report Type: Spontaneous
  Country: US (occurrence: US)
  Receive Date: 20190201
  Receipt Date: 20190201
  Transmission Date: 20190417
  Serious: No
  Sender: FDA-Public Use
  Company Number: US-GLAXOSMITHKLINE-US2018205679

PATIENT
  Age: 76 Year
  Sex: Female

DRUGS (1)
  1. BREO ELLIPTA [Suspect]
     Active Substance: FLUTICASONE FUROATE\VILANTEROL TRIFENATATE
     Indication: DYSPNOEA
     Dosage: 1 PUFF(S), 1D
     Dates: start: 20180928

REACTIONS (10)
  - Dehydration [Unknown]
  - Dizziness [Unknown]
  - Drug ineffective [Unknown]
  - Chest discomfort [Unknown]
  - Confusional state [Unknown]
  - Intentional dose omission [Unknown]
  - Disorientation [Unknown]
  - Treatment noncompliance [Unknown]
  - Dyspnoea [Unknown]
  - Intentional underdose [Unknown]

NARRATIVE: CASE EVENT DATE: 201810
